FAERS Safety Report 7161551-2 (Version None)
Quarter: 2010Q4

REPORT INFORMATION
  Report Type: 
  Country: None (occurrence: None)
  Receive Date: 20101215
  Receipt Date: 20101207
  Transmission Date: 20110411
  Serious: Yes (Death)
  Sender: FDA-Public Use
  Company Number: US-CELGENEUS-163-21880-10081531

PATIENT
  Sex: Male

DRUGS (3)
  1. REVLIMID [Suspect]
     Indication: MULTIPLE MYELOMA
     Route: 048
     Dates: start: 20100427
  2. REVLIMID [Suspect]
     Route: 048
     Dates: start: 20100701
  3. REVLIMID [Suspect]
     Route: 048
     Dates: start: 20100701, end: 20100802

REACTIONS (1)
  - MULTIPLE MYELOMA [None]
